FAERS Safety Report 5422359-9 (Version None)
Quarter: 2007Q3

REPORT INFORMATION
  Report Type: 
  Country: None (occurrence: None)
  Receive Date: 20070820
  Receipt Date: 20070803
  Transmission Date: 20080115
  Serious: Yes (Death)
  Sender: FDA-Public Use
  Company Number: 2007RR-09198

PATIENT
  Age: 67 Year
  Sex: Female

DRUGS (2)
  1. ASPIRIN [Suspect]
  2. IBUPROFEN TABLETS [Suspect]

REACTIONS (6)
  - CARDIAC ARREST [None]
  - CONFUSIONAL STATE [None]
  - DEAFNESS [None]
  - DRUG TOXICITY [None]
  - HYPERVENTILATION [None]
  - MULTIPLE DRUG OVERDOSE [None]
